FAERS Safety Report 12737521 (Version 1)
Quarter: 2016Q3

REPORT INFORMATION
  Report Type: Spontaneous
  Country: US (occurrence: US)
  Receive Date: 20160912
  Receipt Date: 20160912
  Transmission Date: 20161109
  Serious: No
  Sender: FDA-Public Use
  Company Number: US-IMPAX LABORATORIES, INC-2015-IPXL-01368

PATIENT
  Sex: Female
  Weight: 71 kg

DRUGS (1)
  1. URSODIOL CAPSULES 300MG [Suspect]
     Active Substance: URSODIOL
     Indication: CHOLESTASIS
     Dosage: APPROXIMATELY 15MG/KG/DAY
     Route: 065

REACTIONS (4)
  - Maternal exposure timing unspecified [Unknown]
  - Drug prescribing error [Unknown]
  - Product use issue [Unknown]
  - Exposure during pregnancy [None]
